FAERS Safety Report 20623315 (Version 1)
Quarter: 2022Q1

REPORT INFORMATION
  Report Type: Spontaneous
  Country: US (occurrence: None)
  Receive Date: 20220322
  Receipt Date: 20220322
  Transmission Date: 20220424
  Serious: No
  Sender: FDA-Public Use
  Company Number: None

PATIENT
  Sex: Female

DRUGS (1)
  1. ENBREL [Suspect]
     Active Substance: ETANERCEPT
     Indication: Rheumatoid arthritis
     Dosage: OTHER FREQUENCY : EVERY7DAYS;?
     Route: 058
     Dates: start: 20220315, end: 20220322

REACTIONS (13)
  - Malaise [None]
  - Fatigue [None]
  - Pain [None]
  - Influenza [None]
  - Cough [None]
  - Vomiting [None]
  - Nausea [None]
  - Body temperature increased [None]
  - Oropharyngeal pain [None]
  - Rash [None]
  - Skin burning sensation [None]
  - Musculoskeletal stiffness [None]
  - Rheumatoid arthritis [None]
